FAERS Safety Report 12983909 (Version 1)
Quarter: 2016Q4

REPORT INFORMATION
  Report Type: Spontaneous
  Country: US (occurrence: US)
  Receive Date: 20161129
  Receipt Date: 20161129
  Transmission Date: 20170207
  Serious: No
  Sender: FDA-Public Use
  Company Number: US-ENDO PHARMACEUTICALS INC.-2016-004236

PATIENT
  Age: 70 Year
  Sex: Male
  Weight: 88.53 kg

DRUGS (3)
  1. FINASTERIDE. [Suspect]
     Active Substance: FINASTERIDE
     Indication: PRODUCT USED FOR UNKNOWN INDICATION
     Dosage: 5MG TABLET AT BEDTIME
     Route: 048
     Dates: start: 2015
  2. TESTIM [Suspect]
     Active Substance: TESTOSTERONE
     Dosage: APPLY ONE TUBE DAILY
     Route: 065
     Dates: start: 2005, end: 2015
  3. TESTIM [Suspect]
     Active Substance: TESTOSTERONE
     Indication: BLOOD TESTOSTERONE DECREASED
     Dosage: APPLY 1/2 TUBE DAILY
     Route: 065
     Dates: start: 2015

REACTIONS (2)
  - Blood testosterone increased [Recovered/Resolved]
  - Blood testosterone increased [Unknown]

NARRATIVE: CASE EVENT DATE: 2015
